FAERS Safety Report 6419209-0 (Version None)
Quarter: 2009Q4

REPORT INFORMATION
  Report Type: 
  Country: None (occurrence: None)
  Receive Date: 20091028
  Receipt Date: 20091028
  Transmission Date: 20100525
  Serious: Yes (Hospitalization)
  Sender: FDA-Public Use
  Company Number: None

PATIENT
  Sex: Female
  Weight: 70 kg

DRUGS (2)
  1. CARBOPLATIN [Suspect]
     Dosage: 419 MG
  2. TAXOL [Suspect]
     Dosage: 310 MG

REACTIONS (1)
  - NEUTROPHIL COUNT DECREASED [None]
